FAERS Safety Report 16946370 (Version 2)
Quarter: 2019Q4

REPORT INFORMATION
  Report Type: Spontaneous
  Country: US (occurrence: US)
  Receive Date: 20191022
  Receipt Date: 20191114
  Transmission Date: 20200122
  Serious: Yes (Other)
  Sender: FDA-Public Use
  Company Number: US-CELGENEUS-USA-20191007019

PATIENT
  Sex: Male

DRUGS (1)
  1. REVLIMID [Suspect]
     Active Substance: LENALIDOMIDE
     Indication: PLASMA CELL MYELOMA
     Dosage: 15 MILLIGRAM
     Route: 048
     Dates: start: 20180712

REACTIONS (5)
  - Oedema peripheral [Unknown]
  - Red blood cell count decreased [Recovered/Resolved]
  - Hypertension [Unknown]
  - Peripheral swelling [Recovered/Resolved]
  - Arthropathy [Recovered/Resolved]
